FAERS Safety Report 10265629 (Version 1)
Quarter: 2014Q2

REPORT INFORMATION
  Report Type: Spontaneous
  Country: JP (occurrence: None)
  Receive Date: 20140624
  Receipt Date: 20140624
  Transmission Date: 20141212
  Serious: Yes (Hospitalization, Other)
  Sender: FDA-Public Use
  Company Number: 2014JP00057

PATIENT
  Age: 54 Year
  Sex: Male

DRUGS (4)
  1. LAMOTRIGINE [Suspect]
     Indication: DEPRESSIVE SYMPTOM
  2. ARIPIPRAZOLE [Suspect]
     Indication: DEPRESSIVE SYMPTOM
  3. LITHIUM [Suspect]
     Indication: DEPRESSIVE SYMPTOM
  4. SERTRALINE [Suspect]
     Indication: DEPRESSIVE SYMPTOM

REACTIONS (1)
  - Neuroleptic malignant syndrome [None]
